FAERS Safety Report 25382227 (Version 1)
Quarter: 2025Q2

REPORT INFORMATION
  Report Type: Report from Study
  Country: CN (occurrence: CN)
  Receive Date: 20250531
  Receipt Date: 20250531
  Transmission Date: 20250717
  Serious: Yes (Other)
  Sender: Vantive US Healthcare
  Company Number: CN-VANTIVE-2025VAN002400

PATIENT
  Age: 79 Year
  Sex: Female
  Weight: 60 kg

DRUGS (4)
  1. SODIUM CHLORIDE\SODIUM CITRATE, UNSPECIFIED FORM [Suspect]
     Active Substance: SODIUM CHLORIDE\SODIUM CITRATE, UNSPECIFIED FORM
     Indication: Septic shock
     Route: 042
     Dates: start: 20250509, end: 20250515
  2. MAGNESIUM CHLORIDE\POTASSIUM CHLORIDE\SODIUM BICARBONATE\SODIUM CHLORI [Suspect]
     Active Substance: MAGNESIUM CHLORIDE\POTASSIUM CHLORIDE\SODIUM BICARBONATE\SODIUM CHLORIDE\SODIUM PHOSPHATE, DIBASIC
     Indication: Septic shock
     Route: 042
     Dates: start: 20250509, end: 20250515
  3. UNSPECIFIED INGREDIENT [Suspect]
     Active Substance: UNSPECIFIED INGREDIENT
     Route: 065
  4. CALCIUM GLUCONATE [Concomitant]
     Active Substance: CALCIUM GLUCONATE
     Indication: Haemofiltration
     Route: 065
     Dates: start: 20250509, end: 20250510

REACTIONS (2)
  - Hypokalaemia [Not Recovered/Not Resolved]
  - Hyponatraemia [Not Recovered/Not Resolved]

NARRATIVE: CASE EVENT DATE: 20250510
